FAERS Safety Report 6184981-4 (Version None)
Quarter: 2009Q2

REPORT INFORMATION
  Report Type: 
  Country: None (occurrence: None)
  Receive Date: 20090511
  Receipt Date: 20090225
  Transmission Date: 20091009
  Serious: No
  Sender: FDA-Public Use
  Company Number: A0770438A

PATIENT
  Age: 68 Year
  Sex: Male

DRUGS (9)
  1. COREG CR [Suspect]
     Indication: HYPERTENSION
     Dosage: 10MG PER DAY
     Route: 048
     Dates: start: 20081001, end: 20081201
  2. NOVOLOG [Concomitant]
  3. LANTUS [Concomitant]
  4. SIMVASTATIN [Concomitant]
  5. QUINAPRIL [Concomitant]
  6. ZETIA [Concomitant]
  7. NIASPAN [Concomitant]
  8. HYDROCHLOROTHIAZIDE [Concomitant]
  9. OXYCODONE HCL [Concomitant]

REACTIONS (4)
  - BLOOD GLUCOSE DECREASED [None]
  - DISORIENTATION [None]
  - PAIN [None]
  - TACHYCARDIA [None]
